FAERS Safety Report 12520198 (Version 4)
Quarter: 2016Q4

REPORT INFORMATION
  Report Type: Spontaneous
  Country: CO (occurrence: CO)
  Receive Date: 20160701
  Receipt Date: 20161124
  Transmission Date: 20170207
  Serious: Yes (Hospitalization, Other)
  Sender: FDA-Public Use
  Company Number: CO-AMGEN-COLSP2016083200

PATIENT
  Age: 79 Year
  Sex: Female

DRUGS (1)
  1. ENBREL [Suspect]
     Active Substance: ETANERCEPT
     Indication: RHEUMATOID ARTHRITIS
     Dosage: 50 MG, WEEKLY
     Route: 058
     Dates: start: 2014

REACTIONS (8)
  - Paraesthesia [Unknown]
  - Mobility decreased [Not Recovered/Not Resolved]
  - Pleuritic pain [Not Recovered/Not Resolved]
  - Dry gangrene [Unknown]
  - Fall [Not Recovered/Not Resolved]
  - Bone disorder [Not Recovered/Not Resolved]
  - Hip fracture [Not Recovered/Not Resolved]
  - Thrombosis [Not Recovered/Not Resolved]

NARRATIVE: CASE EVENT DATE: 2016
